FAERS Safety Report 19844909 (Version 1)
Quarter: 2021Q3

REPORT INFORMATION
  Report Type: Spontaneous
  Country: PL (occurrence: PL)
  Receive Date: 20210916
  Receipt Date: 20210916
  Transmission Date: 20211014
  Serious: Yes (Other)
  Sender: FDA-Public Use
  Company Number: PL-PFIZER INC-202101148630

PATIENT
  Age: 65 Year
  Sex: Male

DRUGS (5)
  1. VECTIBIX [Suspect]
     Active Substance: PANITUMUMAB
     Dosage: UNK MG/KG
     Route: 065
     Dates: start: 20210127
  2. VECTIBIX [Suspect]
     Active Substance: PANITUMUMAB
     Dosage: 6 MILLIGRAM/KILOGRAM, Q2WK (ONCE PER TWO WEEKS)
     Route: 042
     Dates: start: 20201207
  3. FOLINIC ACID [Suspect]
     Active Substance: LEUCOVORIN
     Dosage: UNK
     Dates: start: 20210127
  4. 5?FU [FLUOROURACIL] [Suspect]
     Active Substance: FLUOROURACIL
     Dosage: UNK
     Dates: start: 20210127
  5. IRINOTECAN HCL [Suspect]
     Active Substance: IRINOTECAN HYDROCHLORIDE
     Dosage: UNK

REACTIONS (11)
  - Pyrexia [Unknown]
  - Malaise [Unknown]
  - Onychoclasis [Unknown]
  - Rash [Unknown]
  - Hyperhidrosis [Unknown]
  - Dyspnoea [Unknown]
  - Neutropenia [Unknown]
  - Anaemia [Unknown]
  - Hypomagnesaemia [Unknown]
  - Chills [Unknown]
  - COVID-19 [Unknown]

NARRATIVE: CASE EVENT DATE: 20201221
